FAERS Safety Report 17398816 (Version 1)
Quarter: 2020Q1

REPORT INFORMATION
  Report Type: Report from Study
  Country: KR (occurrence: KR)
  Receive Date: 20200210
  Receipt Date: 20200210
  Transmission Date: 20200409
  Serious: Yes (Death, Hospitalization)
  Sender: FDA-Public Use
  Company Number: KR-CELGENEUS-KOR-20200202173

PATIENT
  Age: 69 Year
  Sex: Male
  Weight: 45.76 kg

DRUGS (26)
  1. AZACITIDINE. [Suspect]
     Active Substance: AZACITIDINE
     Indication: ACUTE MYELOID LEUKAEMIA
     Route: 058
     Dates: start: 20191113, end: 20191121
  2. GLASDEGIB [Suspect]
     Active Substance: GLASDEGIB
     Indication: ACUTE MYELOID LEUKAEMIA
     Route: 048
     Dates: start: 20190821, end: 20191125
  3. MOSAPRIDE [Concomitant]
     Active Substance: MOSAPRIDE
     Route: 065
     Dates: start: 20191117
  4. SCOPOLAMINE [Concomitant]
     Active Substance: SCOPOLAMINE
     Indication: SPASMODIC DYSPHONIA
     Route: 065
     Dates: start: 20191025, end: 20191113
  5. PALONOSETRON. [Concomitant]
     Active Substance: PALONOSETRON HYDROCHLORIDE
     Route: 065
     Dates: start: 20191121, end: 20191121
  6. MEROPENEM. [Concomitant]
     Active Substance: MEROPENEM
     Indication: SEPTIC SHOCK
     Route: 065
  7. TARGIN PR [Concomitant]
     Indication: PAIN MANAGEMENT
     Route: 048
     Dates: start: 20191004
  8. OXYCODONE [Concomitant]
     Active Substance: OXYCODONE
     Indication: PAIN MANAGEMENT
     Route: 065
     Dates: start: 20191121
  9. MAGNESIUM HYDROXIDE. [Concomitant]
     Active Substance: MAGNESIUM HYDROXIDE
     Indication: ELECTROLYTE IMBALANCE
     Route: 065
     Dates: start: 20191119
  10. MOSAPRIDE [Concomitant]
     Active Substance: MOSAPRIDE
     Indication: DYSPEPSIA
     Route: 065
     Dates: start: 20191030, end: 20191113
  11. LACTULOSE. [Concomitant]
     Active Substance: LACTULOSE
     Indication: CONSTIPATION PROPHYLAXIS
     Route: 065
     Dates: start: 20191031, end: 20191113
  12. KETOROLAC [Concomitant]
     Active Substance: KETOROLAC TROMETHAMINE
     Indication: PAIN MANAGEMENT
     Route: 065
     Dates: start: 20191117, end: 20191117
  13. CLINOLEIC [Concomitant]
     Active Substance: OLIVE OIL\SOYBEAN OIL
     Indication: NUTRITIONAL SUPPLEMENTATION
     Route: 065
     Dates: start: 20191117, end: 20191119
  14. AMINO ACID [Concomitant]
     Active Substance: AMINO ACIDS, SOURCE UNSPECIFIED
     Indication: NUTRITIONAL SUPPLEMENTATION
     Route: 041
     Dates: start: 20191120
  15. URSODEOXYCHOLIC ACID [Concomitant]
     Active Substance: URSODIOL
     Indication: LIVER FUNCTION TEST ABNORMAL
     Route: 065
     Dates: start: 20191113, end: 20191126
  16. LACTULOSE. [Concomitant]
     Active Substance: LACTULOSE
     Route: 065
     Dates: start: 20191117
  17. DOMPERIDONE [Concomitant]
     Active Substance: DOMPERIDONE
     Indication: PROPHYLAXIS OF NAUSEA AND VOMITING
     Route: 065
     Dates: start: 20191120
  18. METOCLOPRAMIDE. [Concomitant]
     Active Substance: METOCLOPRAMIDE
     Indication: NAUSEA
     Route: 065
     Dates: start: 20191117, end: 20191119
  19. LENOGRASTIM [Concomitant]
     Active Substance: LENOGRASTIM
     Indication: NEUTROPENIA
     Route: 065
     Dates: start: 20191117
  20. SCOPOLAMINE [Concomitant]
     Active Substance: SCOPOLAMINE
     Route: 065
     Dates: start: 20191117
  21. VANCOMYCIN [Concomitant]
     Active Substance: VANCOMYCIN
     Indication: SEPTIC SHOCK
     Route: 065
  22. LENOGRASTIM [Concomitant]
     Active Substance: LENOGRASTIM
     Route: 065
     Dates: start: 20191121
  23. DEXAMETHASONE. [Concomitant]
     Active Substance: DEXAMETHASONE
     Indication: SURGICAL PROCEDURE REPEATED
     Route: 065
     Dates: start: 20191113, end: 20191115
  24. PALONOSETRON. [Concomitant]
     Active Substance: PALONOSETRON HYDROCHLORIDE
     Indication: SURGICAL PROCEDURE REPEATED
     Route: 065
     Dates: start: 20191113, end: 20191113
  25. CIPROFLOXACIN. [Concomitant]
     Active Substance: CIPROFLOXACIN
     Indication: PNEUMONIA KLEBSIELLA
     Dosage: 172800 MILLIGRAM
     Route: 041
  26. AMINO ACID [Concomitant]
     Active Substance: AMINO ACIDS, SOURCE UNSPECIFIED
     Route: 065
     Dates: start: 20191121

REACTIONS (2)
  - Cytopenia [Fatal]
  - Sepsis [Fatal]

NARRATIVE: CASE EVENT DATE: 20191126
